FAERS Safety Report 8418661-9 (Version None)
Quarter: 2012Q2

REPORT INFORMATION
  Report Type: 
  Country: None (occurrence: None)
  Receive Date: 20120531
  Receipt Date: 20120522
  Transmission Date: 20120825
  Serious: Yes (Death, Other)
  Sender: FDA-Public Use
  Company Number: AUR-APL-2012-00463

PATIENT
  Age: 81 Year
  Sex: Female

DRUGS (11)
  1. ALLOPURINOL [Concomitant]
  2. DULOXETINE HYDROCHLORIDE [Concomitant]
  3. SIMVASTATIN [Concomitant]
  4. GLICLAZIDE (GLICLAZIDE) [Concomitant]
  5. CAPTOPRIL [Concomitant]
  6. FRUSEMIDE (FURSEMIDE) [Concomitant]
  7. LEVOTHYROXINE SODIUM [Concomitant]
  8. MORPHINE SULFATE [Concomitant]
  9. METFFORMIN HYDROCHLORIDE [Suspect]
     Indication: TYPE 2 DIABETES MELLITUS
     Dosage: 2550 MG (850 MG, 3 IN 1 D),ORAL
     Route: 048
  10. LANSOPRAZOLE [Concomitant]
  11. ACETAMINOPHEN [Concomitant]

REACTIONS (4)
  - RENAL FAILURE ACUTE [None]
  - METABOLIC ACIDOSIS [None]
  - ABDOMINAL DISCOMFORT [None]
  - DEHYDRATION [None]
